FAERS Safety Report 9579113 (Version 1)
Quarter: 2013Q4

REPORT INFORMATION
  Report Type: Spontaneous
  Country: US (occurrence: US)
  Receive Date: 20131001
  Receipt Date: 20131001
  Transmission Date: 20140711
  Serious: No
  Sender: FDA-Public Use
  Company Number: US-AMGEN-USASP2013016596

PATIENT
  Age: 57 Year
  Sex: Female
  Weight: 61.22 kg

DRUGS (8)
  1. ENBREL [Suspect]
     Indication: PSORIATIC ARTHROPATHY
     Dosage: 50 MG, 2 TIMES/WK, (72 TO 96 HOURS APART)
     Route: 058
  2. XANAX [Concomitant]
     Dosage: 0.25 MG, UNK
  3. METHOTREXATE [Concomitant]
     Dosage: 2.5 MG, UNK
  4. PREDNISONE [Concomitant]
     Dosage: 1 MG, UNK
  5. BENADRYL                           /00000402/ [Concomitant]
     Dosage: 25 MG, UNK
  6. IBUPROFEN [Concomitant]
     Dosage: 200 MG, UNK
  7. MELATONIN [Concomitant]
     Dosage: 3 MG, UNK
  8. ALBUTEROL                          /00139501/ [Concomitant]
     Dosage: 90 MUG, UNK, RF

REACTIONS (1)
  - Upper respiratory tract infection [Unknown]
